FAERS Safety Report 6807618-7 (Version None)
Quarter: 2010Q2

REPORT INFORMATION
  Report Type: 
  Country: None (occurrence: None)
  Receive Date: 20100629
  Receipt Date: 20081028
  Transmission Date: 20101027
  Serious: No
  Sender: FDA-Public Use
  Company Number: US-PFIZER INC-2008091572

PATIENT
  Sex: Male
  Weight: 86.4 kg

DRUGS (4)
  1. SPIRONOLACTONE [Suspect]
     Indication: MUSCLE DISORDER
     Dates: start: 20080101
  2. RANITIDINE HCL [Suspect]
     Indication: DYSPEPSIA
     Dates: start: 20080101, end: 20080101
  3. ACETAZOLAMIDE [Concomitant]
  4. POTASSIUM [Concomitant]

REACTIONS (4)
  - ASTHENIA [None]
  - GYNAECOMASTIA [None]
  - NAUSEA [None]
  - PAIN [None]
